FAERS Safety Report 11406716 (Version 3)
Quarter: 2015Q4

REPORT INFORMATION
  Report Type: Spontaneous
  Country: US (occurrence: US)
  Receive Date: 20150821
  Receipt Date: 20151125
  Transmission Date: 20160304
  Serious: Yes (Death, Hospitalization)
  Sender: FDA-Public Use
  Company Number: US-PFIZER INC-2015269115

PATIENT
  Age: 59 Year
  Sex: Male
  Weight: 41 kg

DRUGS (4)
  1. XALKORI [Suspect]
     Active Substance: CRIZOTINIB
     Indication: LUNG NEOPLASM MALIGNANT
     Dosage: 250 MG, 1X/DAY (5-ONCE A DAY)
     Dates: start: 201505, end: 201505
  2. MORPHINE [Concomitant]
     Active Substance: MORPHINE
     Dosage: UNK
     Dates: start: 201409
  3. OXYCODONE [Concomitant]
     Active Substance: OXYCODONE
     Dosage: UNK
     Dates: start: 201409
  4. FENTANYL. [Concomitant]
     Active Substance: FENTANYL
     Dosage: UNK
     Dates: start: 201409

REACTIONS (3)
  - Lung neoplasm malignant [Fatal]
  - Dysphagia [Unknown]
  - Disease progression [Fatal]

NARRATIVE: CASE EVENT DATE: 201505
